FAERS Safety Report 9749495 (Version 3)
Quarter: 2014Q1

REPORT INFORMATION
  Report Type: Spontaneous
  Country: FI (occurrence: FI)
  Receive Date: 20131212
  Receipt Date: 20140203
  Transmission Date: 20141002
  Serious: Yes (Other)
  Sender: FDA-Public Use
  Company Number: FI-PFIZER INC-2013351998

PATIENT
  Age: 74 Year
  Sex: Female

DRUGS (10)
  1. LYRICA [Suspect]
     Indication: BACK PAIN
     Dosage: 25 MG, UNK (1X1-2 )
     Dates: start: 200912
  2. LYRICA [Suspect]
     Dosage: 2 TIMES A DAY FOR APPROXIMATELY FOR A WEEK
     Dates: start: 201206, end: 2012
  3. RIVATRIL [Concomitant]
     Dosage: 0.5 MG, 1X/DAY
  4. CARTEXAN [Concomitant]
     Dosage: 400 MG, 2X/DAY
  5. THYROXIN [Concomitant]
     Dosage: 0.1 MG, UNK
  6. MAREVAN [Concomitant]
     Dosage: UNK
  7. SIMVASTATIN [Concomitant]
     Dosage: 20 MG, 1X/DAY
  8. CARDACE [Concomitant]
     Dosage: 2.5 MG, 1X/DAY
  9. BISOPROLOL [Concomitant]
     Dosage: 5 MG X1+0.5
  10. DIGOXIN SEMI [Concomitant]
     Dosage: UNK, ONCE DAILY

REACTIONS (5)
  - Joint effusion [Unknown]
  - Local swelling [Unknown]
  - Arthralgia [Not Recovered/Not Resolved]
  - Pain in extremity [Not Recovered/Not Resolved]
  - Swelling [Unknown]
